FAERS Safety Report 10203751 (Version 1)
Quarter: 2014Q2

REPORT INFORMATION
  Report Type: Spontaneous
  Country: GB (occurrence: None)
  Receive Date: 20140523
  Receipt Date: 20140523
  Transmission Date: 20141212
  Serious: Yes (Other)
  Sender: FDA-Public Use
  Company Number: CL-565-2014

PATIENT
  Age: 50 Year
  Sex: Male

DRUGS (3)
  1. METRONIDAZOLE [Suspect]
     Indication: LICHEN PLANUS
  2. ORAL VITAMINS [Concomitant]
  3. TOPICAL TRIAMCINOLON [Concomitant]

REACTIONS (10)
  - Stevens-Johnson syndrome [None]
  - Dizziness [None]
  - Confusional state [None]
  - Convulsion [None]
  - Loss of consciousness [None]
  - Chills [None]
  - Palpitations [None]
  - Pain in extremity [None]
  - Gait disturbance [None]
  - Hyperglycaemia [None]
